APPROVED DRUG PRODUCT: DAPSONE
Active Ingredient: DAPSONE
Strength: 5%
Dosage Form/Route: GEL;TOPICAL
Application: A213907 | Product #001 | TE Code: AB
Applicant: TP ANDA HOLDINGS LLC
Approved: Jun 6, 2023 | RLD: No | RS: No | Type: RX